FAERS Safety Report 5694431-X (Version None)
Quarter: 2008Q2

REPORT INFORMATION
  Report Type: 
  Country: None (occurrence: None)
  Receive Date: 20080404
  Receipt Date: 20080328
  Transmission Date: 20081010
  Serious: Yes (Hospitalization)
  Sender: FDA-Public Use
  Company Number: PHNU2008DE01420

PATIENT
  Age: 66 Year
  Sex: Female

DRUGS (1)
  1. PROVAS [Suspect]
     Indication: HYPERTENSION
     Dosage: 1 DF/DAY
     Route: 048
     Dates: start: 20080213, end: 20080220

REACTIONS (3)
  - CARBUNCLE [None]
  - PURULENT DISCHARGE [None]
  - SCAR [None]
